FAERS Safety Report 4622254-9 (Version None)
Quarter: 2005Q1

REPORT INFORMATION
  Report Type: 
  Country: None (occurrence: None)
  Receive Date: 20050324
  Receipt Date: 20050324
  Transmission Date: 20050727
  Serious: No
  Sender: FDA-Public Use
  Company Number: None

PATIENT
  Sex: Female
  Weight: 92 kg

DRUGS (10)
  1. ALL-TRANS RETINOIC ACID [Suspect]
     Dosage: 22.5 MG/M2 PO BID Q12HR STARTING ON DAY 1, FOR A MAXIMUM OF 90 DAYS.
     Route: 048
     Dates: start: 20040930
  2. DAUNOMYCIN [Suspect]
     Dosage: 50 MG/M2 IV BOLUS OVER 5-10 MIN QD ON DAYS 3-6.
     Route: 042
  3. CYTARABINE [Suspect]
     Dosage: 200 MG/M2/DAY CIV FOR 7 DAYS STARTING ON DAY 3.
  4. ATRA [Suspect]
     Dosage: ALONE MAINTENANCE, STARTS 2-4 WEEKS AFTER ANC RECOVERY, DURATION = 1 YEAR:
  5. NORTRIPTYLINE HCL [Concomitant]
  6. LORAZEPAM [Concomitant]
  7. ARTHROTEC [Concomitant]
  8. GAGAPENTIN [Concomitant]
  9. ATRA [Concomitant]
  10. ZANTAC [Concomitant]

REACTIONS (6)
  - ARTHRALGIA [None]
  - DYSPNOEA [None]
  - NECK PAIN [None]
  - NEOPLASM OF THYMUS [None]
  - PALLOR [None]
  - TACHYCARDIA [None]
